FAERS Safety Report 8452013 (Version 6)
Quarter: 2012Q4

REPORT INFORMATION
  Report Type: Report from Study
  Country: US (occurrence: US)
  Receive Date: 20120309
  Receipt Date: 20121228
  Transmission Date: 20130627
  Serious: Yes (Hospitalization, Other)
  Sender: FDA-Public Use
  Company Number: US-ABBOTT-12P-163-0911848-00

PATIENT
  Age: 51 Year
  Sex: Female

DRUGS (9)
  1. HUMIRA 40 MG/ 0.8 ML PRE-FILLED SYRINGE [Suspect]
     Indication: CROHN^S DISEASE
     Dates: start: 201201, end: 20120216
  2. LIPITOR [Interacting]
     Indication: PRODUCT USED FOR UNKNOWN INDICATION
  3. CYCLOSPORINE [Interacting]
     Indication: PRODUCT USED FOR UNKNOWN INDICATION
     Route: 042
  4. 6-MP [Concomitant]
     Indication: PRODUCT USED FOR UNKNOWN INDICATION
  5. VALTREX [Concomitant]
     Indication: PRODUCT USED FOR UNKNOWN INDICATION
     Route: 048
  6. PREDNISONE [Concomitant]
     Indication: PRODUCT USED FOR UNKNOWN INDICATION
  7. MULTIVITAMIN [Concomitant]
     Indication: PRODUCT USED FOR UNKNOWN INDICATION
     Route: 048
  8. VITAMIN D [Concomitant]
     Indication: SUPPLEMENTATION THERAPY
  9. CALCIUM [Concomitant]
     Indication: SUPPLEMENTATION THERAPY

REACTIONS (18)
  - Pyrexia [Unknown]
  - Crohn^s disease [Not Recovered/Not Resolved]
  - Crohn^s disease [Unknown]
  - Postoperative wound infection [Recovered/Resolved]
  - Impaired healing [Unknown]
  - Thrombosis [Unknown]
  - Pulmonary embolism [Unknown]
  - Pyoderma [Unknown]
  - Drug ineffective [Not Recovered/Not Resolved]
  - Muscle rupture [Unknown]
  - Suture rupture [Unknown]
  - Pyoderma gangrenosum [Unknown]
  - Enterocutaneous fistula [Unknown]
  - Skin atrophy [Recovering/Resolving]
  - Protein total decreased [Unknown]
  - Somnolence [Unknown]
  - Somnolence [Unknown]
  - Drug interaction [Unknown]
